FAERS Safety Report 10434798 (Version 1)
Quarter: 2014Q3

REPORT INFORMATION
  Report Type: Spontaneous
  Country: US (occurrence: None)
  Receive Date: 20140815
  Receipt Date: 20140815
  Transmission Date: 20150326
  Serious: No
  Sender: FDA-Public Use
  Company Number: 2014TUS003828

PATIENT
  Age: 47 Year
  Sex: Male

DRUGS (8)
  1. WELLBUTRIN [Concomitant]
     Active Substance: BUPROPION HYDROCHLORIDE
  2. BRINTELLIX [Suspect]
     Active Substance: VORTIOXETINE HYDROBROMIDE
     Indication: MAJOR DEPRESSION
     Route: 048
     Dates: start: 20140408, end: 20140418
  3. TRANXENE T-TAB [Concomitant]
     Active Substance: CLORAZEPATE DIPOTASSIUM
  4. METHYLPHENIDATE [Concomitant]
     Active Substance: METHYLPHENIDATE
  5. HYDROCODONE/APAP (HYDROCODONE BITARTRATE, PARACETAMOL) [Concomitant]
  6. NASONEX [Concomitant]
     Active Substance: MOMETASONE FUROATE
  7. FENTANYL. [Concomitant]
     Active Substance: FENTANYL
  8. FLOMAX /01280302/ (TAMSULOSIN HYDROCHLORIDE) [Concomitant]

REACTIONS (2)
  - Feeling hot [None]
  - Paraesthesia [None]

NARRATIVE: CASE EVENT DATE: 201404
